FAERS Safety Report 4374034-X (Version None)
Quarter: 2004Q2

REPORT INFORMATION
  Report Type: 
  Country: None (occurrence: None)
  Receive Date: 20040607
  Receipt Date: 20040331
  Transmission Date: 20050107
  Serious: Yes (Life-Threatening)
  Sender: FDA-Public Use
  Company Number: GB-BRISTOL-MYERS SQUIBB COMPANY-12546552

PATIENT
  Age: 57 Year
  Sex: Female
  Weight: 96 kg

DRUGS (5)
  1. PACLITAXEL [Suspect]
     Indication: BREAST CANCER
     Route: 042
     Dates: start: 20040316, end: 20040316
  2. GRANISETRON [Concomitant]
     Route: 042
     Dates: start: 20040316, end: 20040316
  3. DEXAMETHASONE [Concomitant]
     Route: 042
     Dates: start: 20040316, end: 20040316
  4. RANITIDINE [Concomitant]
     Route: 042
     Dates: start: 20040316, end: 20040316
  5. CHLORPHENIRAMINE MALEATE [Concomitant]
     Route: 042
     Dates: start: 20040316, end: 20040316

REACTIONS (5)
  - APNOEA [None]
  - DYSPNOEA [None]
  - FLUSHING [None]
  - PAIN [None]
  - PARAESTHESIA ORAL [None]
